FAERS Safety Report 10507575 (Version 1)
Quarter: 2014Q4

REPORT INFORMATION
  Report Type: Spontaneous
  Country: US (occurrence: US)
  Receive Date: 20141009
  Receipt Date: 20141009
  Transmission Date: 20150528
  Serious: No
  Sender: FDA-Public Use
  Company Number: US-PFIZER INC-2014275886

PATIENT
  Age: 41 Year

DRUGS (3)
  1. ATIVAN [Suspect]
     Active Substance: LORAZEPAM
     Dosage: 1 MG, 2X/DAY
     Route: 048
  2. XANAX [Suspect]
     Active Substance: ALPRAZOLAM
     Dosage: 1 MG, 1X/DAY (1MG QD PM)
  3. TRILEPTAL [Suspect]
     Active Substance: OXCARBAZEPINE
     Dosage: 150, 2X/DAY
     Route: 048

REACTIONS (1)
  - Drug hypersensitivity [Unknown]
